FAERS Safety Report 23895954 (Version 5)
Quarter: 2025Q1

REPORT INFORMATION
  Report Type: Spontaneous
  Country: ES (occurrence: ES)
  Receive Date: 20240524
  Receipt Date: 20250211
  Transmission Date: 20250409
  Serious: Yes (Hospitalization, Other)
  Sender: SANOFI AVENTIS
  Company Number: ES-SA-2024SA152880

PATIENT
  Age: 64 Year
  Sex: Male

DRUGS (21)
  1. ELOCTATE [Suspect]
     Active Substance: EFMOROCTOCOG ALFA
     Indication: Factor VIII deficiency
     Dosage: UNK UNK, BIW
     Route: 065
     Dates: start: 2018, end: 202101
  2. ELOCTATE [Suspect]
     Active Substance: EFMOROCTOCOG ALFA
     Indication: Factor VIII deficiency
     Dosage: UNK UNK, BIW
     Route: 065
     Dates: start: 2018, end: 202101
  3. ELOCTATE [Suspect]
     Active Substance: EFMOROCTOCOG ALFA
     Route: 065
     Dates: start: 202102
  4. ELOCTATE [Suspect]
     Active Substance: EFMOROCTOCOG ALFA
     Route: 065
     Dates: start: 202102
  5. ELOCTATE [Suspect]
     Active Substance: EFMOROCTOCOG ALFA
     Route: 065
     Dates: start: 202106
  6. ELOCTATE [Suspect]
     Active Substance: EFMOROCTOCOG ALFA
     Route: 065
     Dates: start: 202106
  7. ELOCTATE [Suspect]
     Active Substance: EFMOROCTOCOG ALFA
     Route: 065
     Dates: start: 202201
  8. ELOCTATE [Suspect]
     Active Substance: EFMOROCTOCOG ALFA
     Route: 065
     Dates: start: 202201
  9. ELOCTATE [Suspect]
     Active Substance: EFMOROCTOCOG ALFA
     Route: 065
     Dates: start: 2022
  10. ELOCTATE [Suspect]
     Active Substance: EFMOROCTOCOG ALFA
     Route: 065
     Dates: start: 2022
  11. ELOCTATE [Suspect]
     Active Substance: EFMOROCTOCOG ALFA
     Route: 065
  12. ELOCTATE [Suspect]
     Active Substance: EFMOROCTOCOG ALFA
     Route: 065
  13. EFANESOCTOCOG ALFA [Suspect]
     Active Substance: EFANESOCTOCOG ALFA
     Indication: Product used for unknown indication
     Dosage: 50 IU/KG, QW
  14. EFANESOCTOCOG ALFA [Suspect]
     Active Substance: EFANESOCTOCOG ALFA
     Dosage: 50 IU/KG, QW
  15. EFANESOCTOCOG ALFA [Suspect]
     Active Substance: EFANESOCTOCOG ALFA
  16. EFANESOCTOCOG ALFA [Suspect]
     Active Substance: EFANESOCTOCOG ALFA
     Dosage: 50 IU/KG, QW
  17. EFANESOCTOCOG ALFA [Suspect]
     Active Substance: EFANESOCTOCOG ALFA
     Dosage: 50 IU/KG, QW
  18. EMICIZUMAB [Concomitant]
     Active Substance: EMICIZUMAB
     Indication: Factor VIII deficiency
     Dates: start: 202101
  19. EMICIZUMAB [Concomitant]
     Active Substance: EMICIZUMAB
     Dates: start: 202109
  20. EMICIZUMAB [Concomitant]
     Active Substance: EMICIZUMAB
     Dates: start: 202201
  21. EMICIZUMAB [Concomitant]
     Active Substance: EMICIZUMAB
     Dates: start: 202109

REACTIONS (8)
  - Haemarthrosis [Unknown]
  - Haemophilic arthropathy [Unknown]
  - Bacteraemia [Unknown]
  - Haematoma [Unknown]
  - Pyrexia [Unknown]
  - Synovitis [Unknown]
  - Joint effusion [Unknown]
  - Haematuria [Unknown]

NARRATIVE: CASE EVENT DATE: 20210101
